FAERS Safety Report 5044950-4 (Version None)
Quarter: 2006Q3

REPORT INFORMATION
  Report Type: 
  Country: None (occurrence: None)
  Receive Date: 20060705
  Receipt Date: 20060620
  Transmission Date: 20061208
  Serious: Yes (Hospitalization)
  Sender: FDA-Public Use
  Company Number: 200613954BWH

PATIENT
  Age: 69 Year
  Sex: Female

DRUGS (5)
  1. AVELOX [Suspect]
     Indication: LUNG INFECTION
     Dosage: 400 MG, TOTAL DAILY, INTRAVENOUS
     Route: 042
     Dates: start: 20060422, end: 20060604
  2. TEQUIN [Concomitant]
  3. AMIDARONE [Concomitant]
  4. TYLENOL REGULAR [Concomitant]
  5. ASCORBIC ACID [Concomitant]

REACTIONS (4)
  - DYSPNOEA [None]
  - HYPOGLYCAEMIA [None]
  - PAIN IN EXTREMITY [None]
  - VASCULAR INJURY [None]
